FAERS Safety Report 24646472 (Version 3)
Quarter: 2025Q1

REPORT INFORMATION
  Report Type: Spontaneous
  Country: RU (occurrence: RU)
  Receive Date: 20241121
  Receipt Date: 20250101
  Transmission Date: 20250408
  Serious: Yes (Other)
  Sender: AMGEN
  Company Number: RU-002147023-NVSC2024RU221752

PATIENT
  Sex: Female

DRUGS (2)
  1. ERENUMAB [Suspect]
     Active Substance: ERENUMAB
     Indication: Migraine
     Dosage: UNK,1 INJECTION QMO
     Route: 058
     Dates: start: 2024
  2. ERENUMAB [Suspect]
     Active Substance: ERENUMAB
     Dosage: UNK,1 INJECTION QMO
     Route: 058
     Dates: start: 2024

REACTIONS (1)
  - Pulmonary mass [Unknown]

NARRATIVE: CASE EVENT DATE: 20241101
